FAERS Safety Report 4437260-7 (Version None)
Quarter: 2004Q3

REPORT INFORMATION
  Report Type: 
  Country: None (occurrence: None)
  Receive Date: 20040728
  Receipt Date: 20040526
  Transmission Date: 20050211
  Serious: No
  Sender: FDA-Public Use
  Company Number: WAES 0405USA02004

PATIENT
  Sex: Male

DRUGS (4)
  1. EMEND [Suspect]
     Indication: CHEMOTHERAPY
     Dosage: PO
     Route: 048
  2. EMEND [Suspect]
     Indication: PROPHYLAXIS
     Dosage: PO
     Route: 048
  3. VP-16 [Concomitant]
  4. CISPLATIN [Concomitant]

REACTIONS (1)
  - DYSPHAGIA [None]
